FAERS Safety Report 23234553 (Version 1)
Quarter: 2023Q4

REPORT INFORMATION
  Report Type: Spontaneous
  Country: KR (occurrence: KR)
  Receive Date: 20231128
  Receipt Date: 20231128
  Transmission Date: 20240110
  Serious: Yes (Other)
  Sender: FDA-Public Use
  Company Number: KR-ASTELLAS-2023US035586

PATIENT
  Age: 80 Year
  Sex: Male

DRUGS (5)
  1. MIRABEGRON [Suspect]
     Active Substance: MIRABEGRON
     Indication: Pollakiuria
     Dosage: 50 MG, ONCE DAILY (ONE TABLET ONCE DAILY IN THE MORNING)
     Route: 065
  2. MIRABEGRON [Suspect]
     Active Substance: MIRABEGRON
     Indication: Dysuria
  3. DUTASTERIDE [Concomitant]
     Active Substance: DUTASTERIDE
     Indication: Product used for unknown indication
     Dosage: UNK UNK, ONCE DAILY (TAKEN AT NIGHT)
     Route: 065
  4. Thrupass [Concomitant]
     Indication: Pollakiuria
     Dosage: UNK UNK, ONCE DAILY (TAKEN AT NIGHT)
     Route: 065
  5. Thrupass [Concomitant]
     Indication: Dysuria

REACTIONS (3)
  - Erectile dysfunction [Unknown]
  - Libido decreased [Unknown]
  - Drug ineffective [Unknown]
